FAERS Safety Report 4330278-4 (Version None)
Quarter: 2004Q1

REPORT INFORMATION
  Report Type: 
  Country: None (occurrence: None)
  Receive Date: 20040329
  Receipt Date: 20040126
  Transmission Date: 20041129
  Serious: Yes (Hospitalization, Other)
  Sender: FDA-Public Use
  Company Number: 166377

PATIENT
  Age: 45 Year
  Sex: Female

DRUGS (7)
  1. AVONEX [Suspect]
     Indication: MULTIPLE SCLEROSIS
     Dosage: 30 MCG QW IM
     Route: 030
     Dates: start: 20020211
  2. XANAX [Concomitant]
  3. PROZAC [Concomitant]
  4. DEBRIDAT [Concomitant]
  5. LACTULOSE [Concomitant]
  6. ADVIL [Concomitant]
  7. MANTADIX [Concomitant]

REACTIONS (7)
  - ANAEMIA [None]
  - ANOREXIA [None]
  - CERVIX CARCINOMA STAGE 0 [None]
  - FATIGUE [None]
  - HAEMORRHAGE [None]
  - MULTIPLE SCLEROSIS RELAPSE [None]
  - PARAESTHESIA [None]
